FAERS Safety Report 5079007-X (Version None)
Quarter: 2006Q3

REPORT INFORMATION
  Report Type: 
  Country: None (occurrence: None)
  Receive Date: 20060808
  Receipt Date: 20060801
  Transmission Date: 20061208
  Serious: Yes (Death)
  Sender: FDA-Public Use
  Company Number: 228170

PATIENT
  Age: 93 Year
  Sex: Female

DRUGS (10)
  1. RANIBIZUMAB            (RANIBIZUMAB) [Suspect]
     Indication: MACULAR DEGENERATION
     Dosage: INTRAVITREAL
     Dates: start: 20060215, end: 20060421
  2. HYDROCHLOROTHIAZIDE [Concomitant]
  3. MOBIC [Concomitant]
  4. ACIPHEX [Concomitant]
  5. DILTIAZEM HCL [Concomitant]
  6. LIPITOR [Concomitant]
  7. DETROL LA (TOLTERODINE TARTRATE) [Concomitant]
  8. CRANBERRY EXTRACT (CRANBERRY) [Concomitant]
  9. LOVASTATIN [Concomitant]
  10. CEPHALEXIN [Concomitant]

REACTIONS (1)
  - DEATH [None]
